FAERS Safety Report 7051613-2 (Version None)
Quarter: 2010Q4

REPORT INFORMATION
  Report Type: 
  Country: None (occurrence: None)
  Receive Date: 20101019
  Receipt Date: 20101005
  Transmission Date: 20110411
  Serious: Yes (Other)
  Sender: FDA-Public Use
  Company Number: US-ELI_LILLY_AND_COMPANY-US201009008283

PATIENT
  Sex: Female

DRUGS (7)
  1. FORTEO [Suspect]
     Indication: OSTEOPOROSIS
     Dosage: 20 UG, DAILY (1/D)
     Dates: start: 20090101
  2. ZOLOFT [Concomitant]
  3. ATENOLOL [Concomitant]
  4. WARFARIN SODIUM [Concomitant]
  5. REMERON [Concomitant]
  6. LIPITOR [Concomitant]
  7. EYE DROPS [Concomitant]

REACTIONS (4)
  - FALL [None]
  - GAIT DISTURBANCE [None]
  - HIP FRACTURE [None]
  - WRIST FRACTURE [None]
